FAERS Safety Report 11867429 (Version 1)
Quarter: 2015Q4

REPORT INFORMATION
  Report Type: Report from Study
  Country: US (occurrence: US)
  Receive Date: 20151224
  Receipt Date: 20151224
  Transmission Date: 20160305
  Serious: Yes (Hospitalization)
  Sender: FDA-Public Use
  Company Number: PHHO2015US021126

PATIENT
  Age: 53 Year
  Sex: Female
  Weight: 127 kg

DRUGS (2)
  1. AFINITOR [Suspect]
     Active Substance: EVEROLIMUS
     Indication: BREAST CANCER METASTATIC
     Dosage: 5 MG, QD
     Route: 048
     Dates: start: 20150929
  2. COMPARATOR ERIBULIN [Suspect]
     Active Substance: ERIBULIN
     Indication: BREAST CANCER METASTATIC
     Dosage: 1.4 MG/M2 (DAY 1 EACH CYCLE)
     Route: 042
     Dates: start: 20150929

REACTIONS (2)
  - Lymphoedema [Unknown]
  - Abscess [None]

NARRATIVE: CASE EVENT DATE: 20151213
